FAERS Safety Report 23119301 (Version 1)
Quarter: 2023Q4

REPORT INFORMATION
  Report Type: Spontaneous
  Country: RU (occurrence: RU)
  Receive Date: 20231028
  Receipt Date: 20231028
  Transmission Date: 20240109
  Serious: Yes (Life-Threatening, Other)
  Sender: FDA-Public Use
  Company Number: RU-BAXTER-2023BAX034240

PATIENT
  Age: 18 Year
  Sex: Female
  Weight: 62 kg

DRUGS (3)
  1. MESNA [Suspect]
     Active Substance: MESNA
     Indication: Hodgkin^s disease
     Dosage: 640 MG, 5D
     Route: 041
     Dates: start: 20231004, end: 20231007
  2. MESNA [Suspect]
     Active Substance: MESNA
     Dosage: 640 MG, 5D
     Route: 041
     Dates: start: 20231004, end: 20231007
  3. IFOSFAMIDE [Suspect]
     Active Substance: IFOSFAMIDE
     Indication: Hodgkin^s disease
     Dosage: 3200 MG, 1D
     Route: 041
     Dates: start: 20231004, end: 20231007

REACTIONS (5)
  - Hyperaemia [Recovering/Resolving]
  - Drug eruption [Recovering/Resolving]
  - Angioedema [Recovering/Resolving]
  - Pruritus [Recovering/Resolving]
  - Allergic stomatitis [Recovering/Resolving]

NARRATIVE: CASE EVENT DATE: 20231004
